FAERS Safety Report 23190505 (Version 9)
Quarter: 2024Q2

REPORT INFORMATION
  Report Type: Spontaneous
  Country: GB (occurrence: GB)
  Receive Date: 20231116
  Receipt Date: 20240503
  Transmission Date: 20240716
  Serious: Yes (Death, Hospitalization, Other)
  Sender: FDA-Public Use
  Company Number: None

PATIENT
  Age: 59 Year
  Sex: Male
  Weight: 62 kg

DRUGS (211)
  1. ARIPIPRAZOLE [Suspect]
     Active Substance: ARIPIPRAZOLE
     Indication: Schizophrenia
     Dosage: 5 MILLIGRAM (OFF LABEL USE) TABLET (UNCOATED)
     Route: 048
  2. ARIPIPRAZOLE [Suspect]
     Active Substance: ARIPIPRAZOLE
     Dosage: UNK (TABLET)
     Route: 065
  3. ARIPIPRAZOLE [Suspect]
     Active Substance: ARIPIPRAZOLE
     Dosage: 5 MILLIGRAM (POWDER FOR SOLUTION FOR INFUSION)
     Route: 065
  4. ARIPIPRAZOLE [Suspect]
     Active Substance: ARIPIPRAZOLE
     Dosage: 5 MILLIGRAM (TABLET)
     Route: 065
  5. ARIPIPRAZOLE [Suspect]
     Active Substance: ARIPIPRAZOLE
     Dosage: UNK
     Route: 065
  6. ARIPIPRAZOLE [Suspect]
     Active Substance: ARIPIPRAZOLE
     Dosage: 5 MILLIGRAM (OFF LABEL USE) TABLET (UNCOATED)
     Route: 048
  7. ARIPIPRAZOLE [Suspect]
     Active Substance: ARIPIPRAZOLE
     Dosage: 5 MILLIGRAM (TABLET)
     Route: 065
  8. ARIPIPRAZOLE [Suspect]
     Active Substance: ARIPIPRAZOLE
     Dosage: 5 MILLIGRAM
     Route: 048
  9. ARIPIPRAZOLE [Suspect]
     Active Substance: ARIPIPRAZOLE
     Dosage: 5 MILLIGRAM
     Route: 048
  10. ARIPIPRAZOLE [Suspect]
     Active Substance: ARIPIPRAZOLE
     Dosage: UNK (TABLET)
     Route: 048
  11. ARIPIPRAZOLE [Suspect]
     Active Substance: ARIPIPRAZOLE
     Dosage: 5 MILLIGRAM
     Route: 048
  12. ARIPIPRAZOLE [Suspect]
     Active Substance: ARIPIPRAZOLE
     Dosage: 5 MILLIGRAM (TABLET)
     Route: 048
  13. ARIPIPRAZOLE [Suspect]
     Active Substance: ARIPIPRAZOLE
     Dosage: 5 MILLIGRAM
     Route: 048
  14. ARIPIPRAZOLE [Suspect]
     Active Substance: ARIPIPRAZOLE
     Dosage: 5 MILLIGRAM (TABLET)
     Route: 065
  15. ARIPIPRAZOLE [Suspect]
     Active Substance: ARIPIPRAZOLE
     Dosage: UNK
     Route: 065
  16. ARIPIPRAZOLE [Suspect]
     Active Substance: ARIPIPRAZOLE
     Dosage: UNK
     Route: 048
  17. ARIPIPRAZOLE [Suspect]
     Active Substance: ARIPIPRAZOLE
     Dosage: UNK (TABLET)
     Route: 065
  18. ARIPIPRAZOLE [Suspect]
     Active Substance: ARIPIPRAZOLE
     Dosage: 5 MILLIGRAM
     Route: 065
  19. OLANZAPINE [Suspect]
     Active Substance: OLANZAPINE
     Indication: Schizophrenia
     Dosage: 1 MILLIGRAM
     Route: 048
  20. OLANZAPINE [Suspect]
     Active Substance: OLANZAPINE
     Indication: Schizophrenia
     Dosage: UNK
     Route: 065
  21. OLANZAPINE [Suspect]
     Active Substance: OLANZAPINE
     Dosage: 10 MILLIGRAM
     Route: 065
  22. OLANZAPINE [Suspect]
     Active Substance: OLANZAPINE
     Dosage: 15 MILLIGRAM
     Route: 065
     Dates: start: 20040217
  23. OLANZAPINE [Suspect]
     Active Substance: OLANZAPINE
     Dosage: 15 MILLIGRAM
     Route: 048
     Dates: start: 20060704
  24. OLANZAPINE [Suspect]
     Active Substance: OLANZAPINE
     Dosage: 2.5 MILLIGRAM, QD
     Route: 065
     Dates: start: 20080823
  25. OLANZAPINE [Suspect]
     Active Substance: OLANZAPINE
     Dosage: 120 MILLIGRAM
     Route: 065
  26. OLANZAPINE [Suspect]
     Active Substance: OLANZAPINE
     Dosage: 2.5 MILLIGRAM
     Route: 065
     Dates: start: 20080823
  27. OLANZAPINE [Suspect]
     Active Substance: OLANZAPINE
     Dosage: 2.5 MILLIGRAM
     Route: 065
  28. OLANZAPINE [Suspect]
     Active Substance: OLANZAPINE
     Dosage: 1 MILLIGRAM
     Route: 065
     Dates: start: 20040217
  29. OLANZAPINE [Suspect]
     Active Substance: OLANZAPINE
     Dosage: 15 MILLIGRAM
     Route: 065
     Dates: start: 20060704
  30. CHLORPROMAZINE [Suspect]
     Active Substance: CHLORPROMAZINE
     Indication: Schizophrenia
     Dosage: 75 MILLIGRAM (OFF LABEL USE)
     Route: 048
  31. CHLORPROMAZINE [Suspect]
     Active Substance: CHLORPROMAZINE
     Dosage: UNK
     Route: 065
  32. CHLORPROMAZINE [Suspect]
     Active Substance: CHLORPROMAZINE
     Dosage: 75 MILLIGRAM
     Route: 065
  33. CHLORPROMAZINE [Suspect]
     Active Substance: CHLORPROMAZINE
     Dosage: 75 MILLIGRAM
     Route: 065
  34. CHLORPROMAZINE [Suspect]
     Active Substance: CHLORPROMAZINE
     Dosage: 75 MILLIGRAM
     Route: 048
  35. CHLORPROMAZINE [Suspect]
     Active Substance: CHLORPROMAZINE
     Dosage: 75 MILLIGRAM
     Route: 048
  36. CHLORPROMAZINE [Suspect]
     Active Substance: CHLORPROMAZINE
     Dosage: 75 MILLIGRAM
     Route: 048
  37. CHLORPROMAZINE [Suspect]
     Active Substance: CHLORPROMAZINE
     Dosage: 75 MILLIGRAM
     Route: 048
  38. CHLORPROMAZINE [Suspect]
     Active Substance: CHLORPROMAZINE
     Dosage: 75 MILLIGRAM
     Route: 048
  39. CHLORPROMAZINE [Suspect]
     Active Substance: CHLORPROMAZINE
     Dosage: 75 MILLIGRAM
     Route: 048
  40. CLOZARIL [Suspect]
     Active Substance: CLOZAPINE
     Indication: Schizophrenia
     Dosage: 245 MILLIGRAM, QD (TABLET 1 DAY)
     Route: 065
     Dates: start: 20191209, end: 20191223
  41. CLOZARIL [Suspect]
     Active Substance: CLOZAPINE
     Dosage: 245 MILLIGRAM (TABLET)
     Route: 048
     Dates: start: 20100823
  42. CLOZARIL [Suspect]
     Active Substance: CLOZAPINE
     Dosage: 275 MILLIGRAM, QD (ONCE A DAY PM) TABLET
     Route: 065
  43. CLOZARIL [Suspect]
     Active Substance: CLOZAPINE
     Dosage: 400 MILLIGRAM, QD (TABLET)
     Route: 048
  44. CLOZARIL [Suspect]
     Active Substance: CLOZAPINE
     Dosage: 1 DOSAGE FORM, QD (TABLET EACH MORNING)
     Route: 048
  45. CLOZARIL [Suspect]
     Active Substance: CLOZAPINE
     Dosage: 800 MILLIGRAM, QD (DAILY) TABLET
     Route: 048
     Dates: start: 20201207
  46. CLOZARIL [Suspect]
     Active Substance: CLOZAPINE
     Dosage: 300 MILLIGRAM (ONCE A DAY) TABLET
     Route: 048
  47. CLOZARIL [Suspect]
     Active Substance: CLOZAPINE
     Dosage: 400 MILLIGRAM (TABLET)
     Route: 048
     Dates: start: 20100823
  48. CLOZARIL [Suspect]
     Active Substance: CLOZAPINE
     Dosage: 275 MILLIGRAM, QD (TABLET)
     Route: 048
     Dates: start: 20200521
  49. CLOZARIL [Suspect]
     Active Substance: CLOZAPINE
     Dosage: 400 MILLIGRAM, QD (POWDER FOR SOLUTION FOR INFUSION)
     Route: 065
     Dates: start: 20191223, end: 20191223
  50. CLOZARIL [Suspect]
     Active Substance: CLOZAPINE
     Dosage: 245 MILLIGRAM, QD
     Route: 048
     Dates: start: 20190823, end: 20190823
  51. CLOZARIL [Suspect]
     Active Substance: CLOZAPINE
     Dosage: 6000 MILLIGRAM (POWDER FOR SOLUTION FOR INFUSION)
     Route: 048
     Dates: start: 20200521
  52. CLOZARIL [Suspect]
     Active Substance: CLOZAPINE
     Dosage: 6000 MILLIGRAM (POWDER FOR SOLUTION FOR INFUSION)
     Route: 048
     Dates: start: 20200521
  53. CLOZARIL [Suspect]
     Active Substance: CLOZAPINE
     Dosage: UNK
     Route: 048
     Dates: start: 20191209, end: 20191223
  54. CLOZARIL [Suspect]
     Active Substance: CLOZAPINE
     Dosage: 400 MILLIGRAM, QD (TABLET)
     Route: 048
  55. CLOZARIL [Suspect]
     Active Substance: CLOZAPINE
     Dosage: 1 DOSAGE FORM, QD
     Route: 048
  56. CLOZARIL [Suspect]
     Active Substance: CLOZAPINE
     Dosage: 275 MILLIGRAM, QD (POWDER FOR SOLUTION FOR INFUSION)
     Route: 065
  57. CLOZARIL [Suspect]
     Active Substance: CLOZAPINE
     Dosage: 200 MILLIGRAM, BID (TABLET, UNCOATED)
     Route: 048
     Dates: start: 20191209, end: 20191223
  58. CLOZARIL [Suspect]
     Active Substance: CLOZAPINE
     Dosage: 800 MILLIGRAM, QD
     Route: 065
  59. CLOZARIL [Suspect]
     Active Substance: CLOZAPINE
     Dosage: UNK (TABLET)
     Route: 065
     Dates: start: 20201207
  60. CLOZARIL [Suspect]
     Active Substance: CLOZAPINE
     Dosage: 50 MILLIGRAM, QD (TABLET)
     Route: 065
     Dates: start: 20200521
  61. CLOZARIL [Suspect]
     Active Substance: CLOZAPINE
     Dosage: 100 MILLIGRAM, QD (POWDER FOR SOLUTION FOR INFUSION)
     Route: 048
     Dates: start: 20191223, end: 20191223
  62. CLOZARIL [Suspect]
     Active Substance: CLOZAPINE
     Dosage: 245 MILLIGRAM, OD (TABLET)
     Route: 048
  63. CLOZARIL [Suspect]
     Active Substance: CLOZAPINE
     Dosage: 800 MILLIGRAM, QD
     Route: 048
     Dates: start: 20200207
  64. CLOZARIL [Suspect]
     Active Substance: CLOZAPINE
     Dosage: UNK (POWDER FOR SOLUTION FOR INFUSION)
     Route: 065
     Dates: start: 20200521
  65. CLOZARIL [Suspect]
     Active Substance: CLOZAPINE
     Dosage: 6000 MILLIGRAM, QD
     Route: 048
     Dates: start: 20201223, end: 20201223
  66. CLOZARIL [Suspect]
     Active Substance: CLOZAPINE
     Dosage: 6000 MILLIGRAM (TABLET)
     Route: 048
     Dates: start: 20201207
  67. CLOZARIL [Suspect]
     Active Substance: CLOZAPINE
     Dosage: 300 MILLIGRAM (TABLET)
     Route: 065
  68. CLOZARIL [Suspect]
     Active Substance: CLOZAPINE
     Dosage: 6000 MILLIGRAM (POWDER FOR SOLUTION FOR INFUSION)
     Route: 065
     Dates: start: 20191209, end: 20191223
  69. CLOZARIL [Suspect]
     Active Substance: CLOZAPINE
     Dosage: 245 MILLIGRAM, QD
     Route: 048
     Dates: start: 20191209, end: 20191223
  70. CLOZARIL [Suspect]
     Active Substance: CLOZAPINE
     Dosage: 800 MILLIGRAM, QD (POWDER FOR SOLUTION)
     Route: 065
     Dates: start: 20201207
  71. CLOZARIL [Suspect]
     Active Substance: CLOZAPINE
     Dosage: 400 MILLIGRAM, QD
     Route: 065
  72. CLOZARIL [Suspect]
     Active Substance: CLOZAPINE
     Dosage: 50 MILLIGRAM, QD (POWDER FOR SOLUTION FOR INFUSION)
     Route: 065
     Dates: start: 20191207, end: 20191223
  73. CLOZARIL [Suspect]
     Active Substance: CLOZAPINE
     Dosage: UNK
     Route: 048
     Dates: start: 20191223, end: 20191223
  74. CLOZARIL [Suspect]
     Active Substance: CLOZAPINE
     Dosage: 600 MILLIGRAM, QD
     Route: 048
     Dates: start: 20200521
  75. CLOZARIL [Suspect]
     Active Substance: CLOZAPINE
     Dosage: 50 MILLIGRAM, QD
     Route: 048
     Dates: start: 20200521
  76. CLOZARIL [Suspect]
     Active Substance: CLOZAPINE
     Dosage: 300 MILLIGRAM, QD
     Route: 065
  77. CLOZARIL [Suspect]
     Active Substance: CLOZAPINE
     Dosage: 100 MILLIGRAM, QD
     Route: 048
  78. CLOZARIL [Suspect]
     Active Substance: CLOZAPINE
     Dosage: 300 MILLIGRAM, QD (POWDER FOR SOLUTION FOR INFUSION)
     Route: 065
     Dates: start: 20100823
  79. CLOZARIL [Suspect]
     Active Substance: CLOZAPINE
     Dosage: 245 MILLIGRAM, QD (TABLET)
     Route: 065
     Dates: start: 20191207
  80. CLOZARIL [Suspect]
     Active Substance: CLOZAPINE
     Dosage: 245 MILLIGRAM
     Route: 065
     Dates: start: 20191223, end: 20191223
  81. CLOZARIL [Suspect]
     Active Substance: CLOZAPINE
     Dosage: 400 MILLIGRAM, QD (POWDER FOR SOLUTION FOR INFUSION)
     Route: 065
     Dates: start: 20100823, end: 20100823
  82. CLOZARIL [Suspect]
     Active Substance: CLOZAPINE
     Dosage: 6000 MILLIGRAM, QD
     Route: 048
     Dates: start: 20100823, end: 20100823
  83. CLOZARIL [Suspect]
     Active Substance: CLOZAPINE
     Dosage: 200 MILLIGRAM, BID (POWDER FOR SOLUTION FOR INFUSION)
     Route: 048
  84. CLOZARIL [Suspect]
     Active Substance: CLOZAPINE
     Dosage: 200 MILLIGRAM, BID (POWDER FOR SOLUTION FOR INFUSION)
     Route: 048
     Dates: start: 20100823
  85. CLOZARIL [Suspect]
     Active Substance: CLOZAPINE
     Dosage: 400 MILLIGRAM, OD
     Route: 048
     Dates: start: 20191223, end: 20191223
  86. CLOZARIL [Suspect]
     Active Substance: CLOZAPINE
     Dosage: 245 MILLIGRAM, QD
     Route: 065
  87. CLOZARIL [Suspect]
     Active Substance: CLOZAPINE
     Dosage: 275 MILLIGRAM, QD (POWDER FOR SOLUTION FOR INFUSION)
     Route: 048
     Dates: start: 20191207
  88. CLOZARIL [Suspect]
     Active Substance: CLOZAPINE
     Dosage: 50 MILLIGRAM, QD (POWDER FOR SOLUTION)
     Route: 048
     Dates: start: 20191209, end: 20191223
  89. CLOZARIL [Suspect]
     Active Substance: CLOZAPINE
     Dosage: 245 MILLIGRAM, QD (TABLET, UNCOATED)
     Route: 048
     Dates: start: 20191223, end: 20191223
  90. DOCETAXEL [Suspect]
     Active Substance: DOCETAXEL\DOCETAXEL ANHYDROUS
     Indication: Breast cancer metastatic
     Dosage: 220 MILLIGRAM
     Route: 065
  91. DOCETAXEL [Suspect]
     Active Substance: DOCETAXEL\DOCETAXEL ANHYDROUS
     Dosage: 220 MILLIGRAM (INJECTION)
     Route: 065
     Dates: start: 20151222
  92. DOCETAXEL [Suspect]
     Active Substance: DOCETAXEL\DOCETAXEL ANHYDROUS
     Dosage: 110 MILLIGRAM (Q3W, SOLUTION FOR INJECTION)
     Route: 065
     Dates: start: 20150930, end: 20151021
  93. DOCETAXEL [Suspect]
     Active Substance: DOCETAXEL\DOCETAXEL ANHYDROUS
     Dosage: UNK (INJECTION)
     Route: 065
     Dates: start: 20151222
  94. DOCETAXEL [Suspect]
     Active Substance: DOCETAXEL\DOCETAXEL ANHYDROUS
     Dosage: 220 MILLIGRAM (SOLUTION FOR INJECTION)
     Route: 065
  95. DOCETAXEL [Suspect]
     Active Substance: DOCETAXEL\DOCETAXEL ANHYDROUS
     Dosage: 220 MILLIGRAM (INJECTION)
     Route: 065
     Dates: start: 20151222
  96. DOCETAXEL [Suspect]
     Active Substance: DOCETAXEL\DOCETAXEL ANHYDROUS
     Dosage: 110 MILLIGRAM (SOLUTION FOR INJECTION)
     Route: 042
     Dates: start: 20150930, end: 20151021
  97. DOCETAXEL [Suspect]
     Active Substance: DOCETAXEL\DOCETAXEL ANHYDROUS
     Dosage: 220 MILLIGRAM
     Route: 065
     Dates: start: 20150930, end: 20151021
  98. DOCETAXEL [Suspect]
     Active Substance: DOCETAXEL\DOCETAXEL ANHYDROUS
     Dosage: 110 MILLIGRAM (EVERY 3 WEEKS)
     Route: 065
     Dates: start: 20150930, end: 20151021
  99. DOCETAXEL [Suspect]
     Active Substance: DOCETAXEL\DOCETAXEL ANHYDROUS
     Dosage: 220 MILLIGRAM (SOLUTION FOR INJECTION)
     Route: 065
     Dates: start: 20150930, end: 20151021
  100. DOCETAXEL [Suspect]
     Active Substance: DOCETAXEL\DOCETAXEL ANHYDROUS
     Dosage: UNK (SOLUTION FOR INJECTION)
     Route: 065
     Dates: start: 20151222
  101. DOCETAXEL [Suspect]
     Active Substance: DOCETAXEL\DOCETAXEL ANHYDROUS
     Dosage: 200 MILLIGRAM (INJECTION)
     Route: 065
  102. DOCETAXEL [Suspect]
     Active Substance: DOCETAXEL\DOCETAXEL ANHYDROUS
     Dosage: 220 MILLIGRAM (INJECTION)
     Route: 065
  103. HALDOL [Suspect]
     Active Substance: HALOPERIDOL
     Indication: Product used for unknown indication
     Dosage: 20 MILLIGRAM, QD (OFF LABEL USE) 10 MILLIGRAM, TWO TIMES A DAY (5 MG, BID)
     Route: 065
  104. HALDOL [Suspect]
     Active Substance: HALOPERIDOL
     Dosage: 40 MILLIGRAM, QD
     Route: 065
  105. HALDOL [Suspect]
     Active Substance: HALOPERIDOL
     Dosage: 5 MILLIGRAM, QD
     Route: 065
  106. HALDOL [Suspect]
     Active Substance: HALOPERIDOL
     Dosage: 10 MILLIGRAM, QD
     Route: 048
  107. HALDOL [Suspect]
     Active Substance: HALOPERIDOL
     Dosage: 10 MILLIGRAM, BID
     Route: 048
  108. HALDOL [Suspect]
     Active Substance: HALOPERIDOL
     Dosage: 20 MILLIGRAM
     Route: 048
  109. HALDOL [Suspect]
     Active Substance: HALOPERIDOL
     Dosage: 20 MILLIGRAM
     Route: 048
  110. HALDOL [Suspect]
     Active Substance: HALOPERIDOL
     Dosage: 5 MILLIGRAM, BID
     Route: 065
  111. HALDOL [Suspect]
     Active Substance: HALOPERIDOL
     Dosage: 40 MILLIGRAM, QD
     Route: 048
  112. HALDOL [Suspect]
     Active Substance: HALOPERIDOL
     Dosage: 5 MILLIGRAM, BID
     Route: 065
  113. HALDOL [Suspect]
     Active Substance: HALOPERIDOL
     Dosage: 5 MILLIGRAM, QD
     Route: 065
  114. HALDOL [Suspect]
     Active Substance: HALOPERIDOL
     Dosage: 10 MILLIGRAM, QD
     Route: 048
  115. HALDOL [Suspect]
     Active Substance: HALOPERIDOL
     Dosage: 20 MILLIGRAM, BID
     Route: 048
  116. HALDOL [Suspect]
     Active Substance: HALOPERIDOL
     Dosage: 20 MILLIGRAM, QD
     Route: 048
  117. HALDOL [Suspect]
     Active Substance: HALOPERIDOL
     Dosage: 20 MILLIGRAM, BID
     Route: 065
  118. DOCETAXEL [Suspect]
     Active Substance: DOCETAXEL\DOCETAXEL ANHYDROUS
     Indication: Breast cancer metastatic
     Dosage: 220 MILLIGRAM
     Route: 065
     Dates: start: 20151222
  119. DOCETAXEL [Suspect]
     Active Substance: DOCETAXEL\DOCETAXEL ANHYDROUS
     Dosage: 220 MILLIGRAM (EVERY 3 WEEK)
     Route: 065
     Dates: start: 20150930, end: 20151021
  120. DOCETAXEL [Suspect]
     Active Substance: DOCETAXEL\DOCETAXEL ANHYDROUS
     Dosage: UNK
     Route: 065
     Dates: start: 20151222
  121. DOCETAXEL [Suspect]
     Active Substance: DOCETAXEL\DOCETAXEL ANHYDROUS
     Dosage: 110 MILLIGRAM (EVERY 3 WEEKS, SOLUTION FOR INJECTION)
     Route: 050
     Dates: start: 20150930, end: 20151021
  122. DOCETAXEL [Suspect]
     Active Substance: DOCETAXEL\DOCETAXEL ANHYDROUS
     Dosage: 220 MILLIGRAM (INJECTION)
     Route: 065
  123. DOCETAXEL [Suspect]
     Active Substance: DOCETAXEL\DOCETAXEL ANHYDROUS
     Dosage: 110 MILLIGRAM (TIW) 330 MG 1 WEEK
     Route: 042
     Dates: start: 20150930, end: 20151021
  124. LITHIUM [Suspect]
     Active Substance: LITHIUM
     Indication: Product used for unknown indication
     Dosage: 2 GRAM
     Route: 048
  125. LITHIUM [Suspect]
     Active Substance: LITHIUM
     Dosage: 6 MILLIGRAM, OD
     Route: 048
  126. LITHIUM [Suspect]
     Active Substance: LITHIUM
     Dosage: 1 GRAM
     Route: 048
  127. LITHIUM [Suspect]
     Active Substance: LITHIUM
     Dosage: 1 GRAM
     Route: 065
  128. LITHIUM [Suspect]
     Active Substance: LITHIUM
     Dosage: 1 GRAM
     Route: 065
  129. LITHIUM [Suspect]
     Active Substance: LITHIUM
     Dosage: UNK
     Route: 065
  130. LITHIUM [Suspect]
     Active Substance: LITHIUM
     Dosage: 1 MILLIGRAM
     Route: 048
  131. LITHIUM [Suspect]
     Active Substance: LITHIUM
     Dosage: 1 MILLIGRAM (TABLET)
     Route: 048
  132. LITHIUM [Suspect]
     Active Substance: LITHIUM
     Dosage: 2 GRAM
     Route: 065
  133. LORAZEPAM [Suspect]
     Active Substance: LORAZEPAM
     Indication: Schizophrenia
     Dosage: 1 MILLIGRAM (TABLET)
     Route: 048
  134. LORAZEPAM [Suspect]
     Active Substance: LORAZEPAM
     Dosage: UNK (TABLET)
     Route: 065
  135. LORAZEPAM [Suspect]
     Active Substance: LORAZEPAM
     Dosage: 1 MILLIGRAM
     Route: 065
  136. LORAZEPAM [Suspect]
     Active Substance: LORAZEPAM
     Dosage: 1 MILLIGRAM
     Route: 048
  137. LORAZEPAM [Suspect]
     Active Substance: LORAZEPAM
     Dosage: 1 MILLIGRAM (TABLET)
     Route: 048
  138. LORAZEPAM [Suspect]
     Active Substance: LORAZEPAM
     Dosage: 1 MILLIGRAM (TABLET)
     Route: 048
  139. LORAZEPAM [Suspect]
     Active Substance: LORAZEPAM
     Dosage: UNK TABLET (UNCOATED, ORAL)
     Route: 048
  140. LORAZEPAM [Suspect]
     Active Substance: LORAZEPAM
     Dosage: 1 MILLIGRAM (TABLET)
     Route: 048
  141. LORAZEPAM [Suspect]
     Active Substance: LORAZEPAM
     Dosage: 1 MILLIGRAM (TABLET)
     Route: 048
  142. LORAZEPAM [Suspect]
     Active Substance: LORAZEPAM
     Dosage: UNK (MEDICATION ERROR, MISUSE, ABUSE, OFF LABEL USE, OVERDOSE)
     Route: 048
  143. LORAZEPAM [Suspect]
     Active Substance: LORAZEPAM
     Dosage: UNK
     Route: 050
  144. LORAZEPAM [Suspect]
     Active Substance: LORAZEPAM
     Dosage: UNK (TABLET)
     Route: 065
  145. LORAZEPAM [Suspect]
     Active Substance: LORAZEPAM
     Dosage: UNK (TABLET)
     Route: 050
  146. LORAZEPAM [Suspect]
     Active Substance: LORAZEPAM
     Dosage: 1 MILLIGRAM (TABLET)
     Route: 048
  147. LORAZEPAM [Suspect]
     Active Substance: LORAZEPAM
     Dosage: 1 MILLIGRAM
     Route: 048
  148. PACLITAXEL [Suspect]
     Active Substance: PACLITAXEL
     Indication: Breast cancer metastatic
     Dosage: 120 MILLIGRAM, ONCE WEEKLY (INJECTION)
     Route: 065
     Dates: start: 20151223, end: 20151223
  149. PACLITAXEL [Suspect]
     Active Substance: PACLITAXEL
     Dosage: 150 MILLIGRAM, ONCE WEEKLY
     Route: 065
     Dates: start: 20151223, end: 20151223
  150. PACLITAXEL [Suspect]
     Active Substance: PACLITAXEL
     Dosage: 150 MILLIGRAM, ONCE WEEKLY (QW (CUMULATIVE DOSE: 428.57 MG)
     Route: 065
     Dates: start: 20151111, end: 20151222
  151. PACLITAXEL [Suspect]
     Active Substance: PACLITAXEL
     Dosage: 120 MILLIGRAM, ONCE WEEKLY
     Route: 065
     Dates: start: 20151111
  152. PACLITAXEL [Suspect]
     Active Substance: PACLITAXEL
     Dosage: 150 MILLIGRAM, ONCE WEEKLY
     Route: 065
  153. PACLITAXEL [Suspect]
     Active Substance: PACLITAXEL
     Dosage: 120 MILLIGRAM, ONCE WEEKLY
     Route: 065
     Dates: start: 20151111, end: 20151222
  154. PACLITAXEL [Suspect]
     Active Substance: PACLITAXEL
     Dosage: 120 MILLIGRAM, ONCE WEEKLY
     Route: 065
     Dates: start: 20151111, end: 20151222
  155. PACLITAXEL [Suspect]
     Active Substance: PACLITAXEL
     Dosage: 2 INTERNATIONAL UNIT, ONCE WEEKLY
     Route: 065
  156. PERTUZUMAB [Suspect]
     Active Substance: PERTUZUMAB
     Indication: Breast cancer metastatic
     Dosage: 840 MILLIGRAM (3 TIMES A WEEK, OFF LABEL USE) (CUMULATIVE DOSE: 2481.6667 MG)
     Route: 042
  157. PERTUZUMAB [Suspect]
     Active Substance: PERTUZUMAB
     Dosage: 420 MILLIGRAM (3 TIMES A WEEK, OFF LABEL USE, ENDOTRACHEOPULMONARY INSTILLATION, SUSPENSION)
     Route: 042
     Dates: start: 20151021
  158. PERTUZUMAB [Suspect]
     Active Substance: PERTUZUMAB
     Dosage: 420 MILLIGRAM (3 TIMES A WEEK, OFF LABEL USE) (CUMULATIVE DOSE: 820.83 MG)
     Route: 042
  159. PERTUZUMAB [Suspect]
     Active Substance: PERTUZUMAB
     Dosage: 2 INTERNATIONAL UNIT, ONCE WEEKLY
     Route: 042
  160. PERTUZUMAB [Suspect]
     Active Substance: PERTUZUMAB
     Dosage: 420 MILLIGRAM (ONCE IN 3 WEEKS)
     Route: 065
     Dates: start: 20151021
  161. PERTUZUMAB [Suspect]
     Active Substance: PERTUZUMAB
     Dosage: 840 MILLIGRAM (ONCE IN 3 WEEKS, ENDOTRACHEOPULMONARY INSTILLATION, SUSPENSION)
     Route: 065
     Dates: start: 20150930
  162. PERTUZUMAB [Suspect]
     Active Substance: PERTUZUMAB
     Dosage: 1 DOSAGE FORM, ONCE WEEKLY
     Route: 042
     Dates: start: 20151021
  163. PERTUZUMAB [Suspect]
     Active Substance: PERTUZUMAB
     Dosage: 2 INTERNATIONAL UNIT, ONCE WEEKLY
     Route: 065
     Dates: start: 20151021
  164. PERTUZUMAB [Suspect]
     Active Substance: PERTUZUMAB
     Dosage: 1 MILLIGRAM, ONCE WEEKLY
     Route: 065
  165. PERTUZUMAB [Suspect]
     Active Substance: PERTUZUMAB
     Dosage: UNK, ONCE WEEKLY
     Route: 065
  166. PERTUZUMAB [Suspect]
     Active Substance: PERTUZUMAB
     Dosage: 840 MILLIGRAM (ONCE IN 3 WEEKS, INJECTION)
     Route: 065
     Dates: start: 20151021
  167. PERTUZUMAB [Suspect]
     Active Substance: PERTUZUMAB
     Dosage: 420 MILLIGRAM (ONCE IN 3 WEEKS, ENDOTRACHEOPULMONARY INSTILLATION, SUSPENSION)
     Route: 065
     Dates: start: 20151021
  168. RISPERDAL [Suspect]
     Active Substance: RISPERIDONE
     Indication: Schizophrenia
     Dosage: 6 MILLIGRAM, OD
     Route: 065
  169. RISPERDAL [Suspect]
     Active Substance: RISPERIDONE
     Dosage: 6 MILLIGRAM, OD
     Route: 048
  170. RISPERDAL [Suspect]
     Active Substance: RISPERIDONE
     Dosage: 1 MILLIGRAM, QD
     Route: 048
  171. RISPERDAL [Suspect]
     Active Substance: RISPERIDONE
     Dosage: 3 MILLIGRAM, BID
     Route: 048
  172. RISPERDAL [Suspect]
     Active Substance: RISPERIDONE
     Dosage: 2 MILLIGRAM, BID
     Route: 065
  173. RISPERDAL [Suspect]
     Active Substance: RISPERIDONE
     Dosage: 1 MILLIGRAM, QD
     Route: 065
  174. RISPERDAL [Suspect]
     Active Substance: RISPERIDONE
     Dosage: 4 MILLIGRAM, QD
     Route: 065
  175. RISPERDAL [Suspect]
     Active Substance: RISPERIDONE
     Dosage: 1 MILLIGRAM, QD
     Route: 065
  176. RISPERDAL [Suspect]
     Active Substance: RISPERIDONE
     Dosage: UNK
     Route: 065
  177. RISPERDAL [Suspect]
     Active Substance: RISPERIDONE
     Dosage: 2 MILLIGRAM, BID
     Route: 065
  178. RISPERDAL [Suspect]
     Active Substance: RISPERIDONE
     Dosage: 1 GRAM, OD
     Route: 048
  179. RISPERDAL [Suspect]
     Active Substance: RISPERIDONE
     Dosage: 3 MILLIGRAM, QD
     Route: 048
  180. RISPERDAL [Suspect]
     Active Substance: RISPERIDONE
     Dosage: 3 MILLIGRAM, QD
     Route: 048
  181. RISPERDAL [Suspect]
     Active Substance: RISPERIDONE
     Dosage: 6 MILLIGRAM, BID
     Route: 048
  182. RISPERDAL [Suspect]
     Active Substance: RISPERIDONE
     Dosage: 12 MILLIGRAM
     Route: 065
  183. RISPERDAL [Suspect]
     Active Substance: RISPERIDONE
     Dosage: 1 MILLIGRAM
     Route: 065
  184. RISPERDAL [Suspect]
     Active Substance: RISPERIDONE
     Dosage: 4 MILLIGRAM, BID
     Route: 065
  185. RISPERDAL [Suspect]
     Active Substance: RISPERIDONE
     Dosage: 2 MILLIGRAM
     Route: 048
  186. RISPERDAL [Suspect]
     Active Substance: RISPERIDONE
     Dosage: 1 GRAM, QD
     Route: 048
  187. TRASTUZUMAB [Suspect]
     Active Substance: TRASTUZUMAB
     Indication: Breast cancer metastatic
     Dosage: 1827 MILLIGRAM, ONCE WEEKLY (INJECTION) (POWDER FOR CONCENTRATE FOR SOLUTION FOR INFUSION)
     Route: 065
     Dates: start: 20150930
  188. TRASTUZUMAB [Suspect]
     Active Substance: TRASTUZUMAB
     Dosage: 1218 MILLIGRAM, ONCE WEEKLY (POWDER FOR CONCENTRATE FOR SOLUTION FOR INFUSION)
     Route: 065
     Dates: start: 20150930
  189. TRASTUZUMAB [Suspect]
     Active Substance: TRASTUZUMAB
     Dosage: 420 MILLIGRAM (3 TIMES PER WEEK) (CUMULATIVE DOSE: 820.83 MG)
     Route: 065
     Dates: start: 20150930
  190. TRASTUZUMAB [Suspect]
     Active Substance: TRASTUZUMAB
     Dosage: 840 MILLIGRAM (3 TIMES PER WEEK) (CUMULATIVE DOSE: 2481.6667 MG)
     Route: 065
  191. TRASTUZUMAB [Suspect]
     Active Substance: TRASTUZUMAB
     Dosage: 420 MILLIGRAM (ONCE IN 3 WEEKS, POWDER FOR CONCENTRATE FOR SOLUTION FOR INFUSION)
     Route: 065
  192. TRASTUZUMAB [Suspect]
     Active Substance: TRASTUZUMAB
     Dosage: 840 MILLIGRAM (ONCE IN 3 WEEKS, INJECTION)
     Route: 042
  193. TRASTUZUMAB [Suspect]
     Active Substance: TRASTUZUMAB
     Dosage: 1218 MILLIGRAM (POWDER FOR CONCENTRATE FOR SOLUTION FOR INFUSION)
     Route: 065
     Dates: start: 20151130
  194. TRASTUZUMAB [Suspect]
     Active Substance: TRASTUZUMAB
     Dosage: 609 MILLIGRAM (Q3WK (1799.20 MG), POWDER FOR CONCENTRATE FOR SOLUTION FOR INFUSION)
     Route: 065
     Dates: start: 20150930
  195. TRASTUZUMAB [Suspect]
     Active Substance: TRASTUZUMAB
     Dosage: 420 MILLIGRAM (ONCE IN 3 WEEKS, POWDER FOR CONCENTRATE FOR SOLUTION FOR INFUSION)
     Route: 065
  196. TRASTUZUMAB [Suspect]
     Active Substance: TRASTUZUMAB
     Dosage: 420 MILLIGRAM (ONCE IN 3 WEEKS, POWDER FOR CONCENTRATE FOR SOLUTION FOR INFUSION)
     Route: 065
  197. TRASTUZUMAB [Suspect]
     Active Substance: TRASTUZUMAB
     Dosage: 609 MILLIGRAM (Q3WK), POWDER FOR CONCENTRATE FOR SOLUTION FOR INFUSION
     Route: 065
     Dates: start: 20150930
  198. TRASTUZUMAB [Suspect]
     Active Substance: TRASTUZUMAB
     Dosage: 609 MILLIGRAM, ONCE IN 2 WEEKS (POWDER FOR CONCENTRATE FOR SOLUTION FOR INFUSION)
     Route: 042
     Dates: start: 20150930
  199. TRASTUZUMAB [Suspect]
     Active Substance: TRASTUZUMAB
     Dosage: 1827 MILLIGRAM, ONCE WEEKLY (INJECTION) (POWDER FOR CONCENTRATE FOR SOLUTION FOR INFUSION)
     Route: 065
     Dates: start: 20150930
  200. TRASTUZUMAB [Suspect]
     Active Substance: TRASTUZUMAB
     Dosage: 1218 MILLIGRAM, ONCE IN 2 WEEKS (WE (609 MG, 2/W), POWDER FOR CONCENTRATE FOR SOLUTION FOR INFUSION)
     Route: 065
     Dates: start: 20150930
  201. TRASTUZUMAB [Suspect]
     Active Substance: TRASTUZUMAB
     Dosage: 609 MILLIGRAM, ONCE IN 2 WEEKS (POWDER FOR CONCENTRATE FOR SOLUTION FOR INFUSION)
     Route: 042
     Dates: start: 20150930
  202. TRASTUZUMAB [Suspect]
     Active Substance: TRASTUZUMAB
     Dosage: 609 MILLIGRAM, ONCE IN 2 WEEKS (POWDER FOR CONCENTRATE FOR SOLUTION FOR INFUSION)
     Route: 042
     Dates: start: 20150930
  203. TRASTUZUMAB [Suspect]
     Active Substance: TRASTUZUMAB
     Dosage: 1827 MILLIGRAM, ONCE WEEKLY (INJECTION) (POWDER FOR CONCENTRATE FOR SOLUTION FOR INFUSION)
     Route: 065
     Dates: start: 20150930
  204. TRASTUZUMAB [Suspect]
     Active Substance: TRASTUZUMAB
     Dosage: 420 MILLIGRAM (ONCE IN 3 WEEKS, POWDER FOR CONCENTRATE FOR SOLUTION FOR INFUSION)
     Route: 065
  205. TRASTUZUMAB [Suspect]
     Active Substance: TRASTUZUMAB
     Dosage: 609 MILLIGRAM, ONCE IN 2 WEEKS (POWDER FOR CONCENTRATE FOR SOLUTION FOR INFUSION)
     Route: 042
     Dates: start: 20150930
  206. TRASTUZUMAB [Suspect]
     Active Substance: TRASTUZUMAB
     Dosage: 1218 MILLIGRAM, ONCE IN 2 WEEKS (WE (609 MG, 2/W), POWDER FOR CONCENTRATE FOR SOLUTION FOR INFUSION)
     Route: 065
     Dates: start: 20150930
  207. TRASTUZUMAB [Suspect]
     Active Substance: TRASTUZUMAB
     Dosage: 420 MILLIGRAM (ONCE IN 3 WEEKS, POWDER FOR CONCENTRATE FOR SOLUTION FOR INFUSION)
     Route: 065
  208. TRASTUZUMAB [Suspect]
     Active Substance: TRASTUZUMAB
     Dosage: 420 MILLIGRAM (ONCE IN 3 WEEKS, POWDER FOR CONCENTRATE FOR SOLUTION FOR INFUSION)
     Route: 065
  209. TRASTUZUMAB [Suspect]
     Active Substance: TRASTUZUMAB
     Dosage: 609 MILLIGRAM, ONCE IN 2 WEEKS (POWDER FOR CONCENTRATE FOR SOLUTION FOR INFUSION)
     Route: 042
     Dates: start: 20150930
  210. TRASTUZUMAB [Suspect]
     Active Substance: TRASTUZUMAB
     Dosage: 1827 MILLIGRAM, ONCE WEEKLY (INJECTION) (POWDER FOR CONCENTRATE FOR SOLUTION FOR INFUSION)
     Route: 065
     Dates: start: 20150930
  211. TRASTUZUMAB [Suspect]
     Active Substance: TRASTUZUMAB
     Dosage: 1827 MILLIGRAM, ONCE WEEKLY (INJECTION) (POWDER FOR CONCENTRATE FOR SOLUTION FOR INFUSION)
     Route: 065
     Dates: start: 20150930

REACTIONS (36)
  - Fatigue [Fatal]
  - Neutrophil count decreased [Fatal]
  - Neoplasm progression [Fatal]
  - Neutrophil count increased [Fatal]
  - Lymphocyte count decreased [Fatal]
  - Affective disorder [Fatal]
  - Psychotic disorder [Fatal]
  - Rhinalgia [Fatal]
  - Mucosal inflammation [Fatal]
  - Neuropathy peripheral [Fatal]
  - Cellulitis [Fatal]
  - COVID-19 [Fatal]
  - Nausea [Fatal]
  - Seizure [Fatal]
  - Diarrhoea [Fatal]
  - Neutropenia [Fatal]
  - Leukopenia [Fatal]
  - Schizophrenia [Fatal]
  - Hallucination, auditory [Fatal]
  - Delusion of grandeur [Fatal]
  - Extrapyramidal disorder [Fatal]
  - Dyspepsia [Fatal]
  - Alopecia [Fatal]
  - Platelet count decreased [Fatal]
  - Fatigue [Fatal]
  - Leukocytosis [Fatal]
  - Hospitalisation [Fatal]
  - Extrapyramidal disorder [Fatal]
  - SARS-CoV-2 test positive [Fatal]
  - Lymphocyte count abnormal [Fatal]
  - Thrombocytopenia [Fatal]
  - Disease progression [Fatal]
  - Intentional product misuse [Fatal]
  - Off label use [Fatal]
  - Incorrect dose administered [Fatal]
  - Overdose [Fatal]

NARRATIVE: CASE EVENT DATE: 20151101
